FAERS Safety Report 8828185 (Version 1)
Quarter: 2012Q4

REPORT INFORMATION
  Report Type: 
  Country: US (occurrence: US)
  Receive Date: 20121005
  Receipt Date: 20121005
  Transmission Date: 20130627
  Serious: No
  Sender: FDA-Public Use
  Company Number: US-PFIZER INC-2012246157

PATIENT
  Age: 66 Year
  Sex: Female
  Weight: 76.64 kg

DRUGS (4)
  1. LYRICA [Suspect]
     Indication: NEURALGIA
     Dosage: 50 mg, 2x/day
     Dates: start: 201209
  2. MOBIC [Suspect]
     Indication: ANTIINFLAMMATORY THERAPY
     Dosage: UNK
     Dates: start: 201209
  3. FLEXERIL [Suspect]
     Indication: SCOLIOSIS
     Dosage: UNK
  4. FLEXERIL [Suspect]
     Indication: MUSCLE SPASMS

REACTIONS (4)
  - Dyspnoea [Not Recovered/Not Resolved]
  - Swelling face [Not Recovered/Not Resolved]
  - Oedema peripheral [Not Recovered/Not Resolved]
  - Weight increased [Not Recovered/Not Resolved]
